FAERS Safety Report 8578276-9 (Version None)
Quarter: 2012Q3

REPORT INFORMATION
  Report Type: 
  Country: None (occurrence: None)
  Receive Date: 20120726
  Receipt Date: 20120710
  Transmission Date: 20120928
  Serious: Yes (Hospitalization)
  Sender: FDA-Public Use
  Company Number: CIO12012038

PATIENT
  Age: 74 Year
  Sex: Male

DRUGS (1)
  1. METAMUCIL-2 [Suspect]
     Dosage: UNK DOSE, BEDTIME, ORAL
     Route: 048
     Dates: start: 20100101

REACTIONS (3)
  - PYREXIA [None]
  - GASTROENTERITIS ESCHERICHIA COLI [None]
  - PRODUCT CONTAMINATION PHYSICAL [None]
